FAERS Safety Report 21910628 (Version 1)
Quarter: 2023Q1

REPORT INFORMATION
  Report Type: Spontaneous
  Country: US (occurrence: US)
  Receive Date: 20230125
  Receipt Date: 20230125
  Transmission Date: 20230418
  Serious: No
  Sender: FDA-Public Use
  Company Number: US-ALLERGAN-2205810US

PATIENT
  Age: 40 Year
  Sex: Female

DRUGS (3)
  1. BOTOX [Suspect]
     Active Substance: ONABOTULINUMTOXINA
     Indication: Migraine
     Dosage: 155 IU, SINGLE
  2. FEXOFENADINE [Concomitant]
     Active Substance: FEXOFENADINE HYDROCHLORIDE
     Indication: Hypersensitivity
  3. BUDESONIDE [Concomitant]
     Active Substance: BUDESONIDE
     Indication: Hypersensitivity

REACTIONS (1)
  - Madarosis [Not Recovered/Not Resolved]
